FAERS Safety Report 23222558 (Version 1)
Quarter: 2023Q4

REPORT INFORMATION
  Report Type: Spontaneous
  Country: US (occurrence: US)
  Receive Date: 20231123
  Receipt Date: 20231123
  Transmission Date: 20240110
  Serious: No
  Sender: FDA-Public Use
  Company Number: US-OPELLA-2023OHG016355

PATIENT

DRUGS (1)
  1. SELSUN BLUE ITCHY DRY SCALP [Suspect]
     Active Substance: PYRITHIONE ZINC
     Indication: Dry skin

REACTIONS (3)
  - Drug ineffective [Unknown]
  - Product odour abnormal [Unknown]
  - No adverse event [Unknown]
